FAERS Safety Report 5515691-1 (Version None)
Quarter: 2007Q4

REPORT INFORMATION
  Report Type: 
  Country: None (occurrence: None)
  Receive Date: 20071113
  Receipt Date: 20070828
  Transmission Date: 20080405
  Serious: No
  Sender: FDA-Public Use
  Company Number: A0677003A

PATIENT
  Age: 71 Year
  Sex: Male

DRUGS (3)
  1. COREG [Suspect]
     Indication: HYPERTENSION
     Dosage: 12.5MG PER DAY
     Route: 048
     Dates: start: 20050101
  2. AVALIDE [Concomitant]
  3. ASPIRIN [Concomitant]

REACTIONS (2)
  - CONTUSION [None]
  - DIZZINESS [None]
